FAERS Safety Report 21442234 (Version 1)
Quarter: 2022Q4

REPORT INFORMATION
  Report Type: Spontaneous
  Country: US (occurrence: US)
  Receive Date: 20221011
  Receipt Date: 20221011
  Transmission Date: 20230112
  Serious: No
  Sender: FDA-Public Use
  Company Number: US-Sprout Pharmaceuticals, Inc.-2021SP000259

PATIENT
  Age: 57 Year
  Sex: Female
  Weight: 68.100 kg

DRUGS (5)
  1. ADDYI [Suspect]
     Active Substance: FLIBANSERIN
     Indication: Weight decreased
     Route: 048
     Dates: start: 202106, end: 202109
  2. ADDYI [Suspect]
     Active Substance: FLIBANSERIN
     Indication: Sleep disorder
  3. ADDYI [Suspect]
     Active Substance: FLIBANSERIN
     Indication: Libido decreased
  4. WELLBUTRIN [Concomitant]
     Active Substance: BUPROPION HYDROCHLORIDE
     Indication: Product used for unknown indication
  5. OMEPRAZOLE [Concomitant]
     Active Substance: OMEPRAZOLE
     Indication: Product used for unknown indication

REACTIONS (6)
  - Dizziness [Unknown]
  - Drug ineffective for unapproved indication [Unknown]
  - Nausea [Unknown]
  - Insomnia [Recovered/Resolved]
  - Dry mouth [Unknown]
  - Product use in unapproved indication [Recovered/Resolved]

NARRATIVE: CASE EVENT DATE: 20210101
